FAERS Safety Report 23010501 (Version 2)
Quarter: 2023Q4

REPORT INFORMATION
  Report Type: Spontaneous
  Country: CN (occurrence: CN)
  Receive Date: 20230929
  Receipt Date: 20231003
  Transmission Date: 20240110
  Serious: Yes (Other)
  Sender: FDA-Public Use
  Company Number: CN-BAUSCH-BL-2023-014116

PATIENT
  Age: 29 Year
  Sex: Male

DRUGS (4)
  1. ERYTHROMYCIN [Suspect]
     Active Substance: ERYTHROMYCIN
     Indication: Infection prophylaxis
     Route: 061
  2. POVIDONE-IODINE [Suspect]
     Active Substance: POVIDONE-IODINE
     Indication: Infection prophylaxis
     Dosage: EFFECTIVE IODINE 0.45 % - 0.55 %, IODOPHOR GAUZE
     Route: 065
  3. ALCOHOL [Suspect]
     Active Substance: ALCOHOL
     Indication: Infection prophylaxis
     Route: 065
  4. SODIUM CHLORIDE [Concomitant]
     Active Substance: SODIUM CHLORIDE
     Indication: Infection prophylaxis
     Dosage: 0.9 %
     Route: 061

REACTIONS (2)
  - Impaired healing [Recovered/Resolved]
  - Dermatitis contact [Recovered/Resolved]
